FAERS Safety Report 22234929 (Version 1)
Quarter: 2023Q2

REPORT INFORMATION
  Report Type: Spontaneous
  Country: US (occurrence: None)
  Receive Date: 20230419
  Receipt Date: 20230419
  Transmission Date: 20230722
  Serious: No
  Sender: FDA-Public Use
  Company Number: None

PATIENT
  Age: 82 Year
  Sex: Male
  Weight: 83.01 kg

DRUGS (9)
  1. ABIRATERONE ACETATE [Suspect]
     Active Substance: ABIRATERONE ACETATE
     Indication: Prostate cancer
     Dosage: FREQUENCY : DAILY;?
     Route: 048
  2. CELECOXIB [Concomitant]
  3. DITIAZEM HCI ER [Concomitant]
  4. ELIQUIS [Concomitant]
  5. MONTELUKAST SODIUM [Concomitant]
  6. PERINDOPRIL ERBUMINE [Concomitant]
  7. PREDNISONE [Concomitant]
  8. TAMSULOSIN HCI [Concomitant]
  9. TRAZODONE HCI [Concomitant]

REACTIONS (1)
  - Prostatic specific antigen increased [None]
